FAERS Safety Report 7395271-6 (Version None)
Quarter: 2011Q2

REPORT INFORMATION
  Report Type: 
  Country: None (occurrence: None)
  Receive Date: 20110405
  Receipt Date: 20110329
  Transmission Date: 20111010
  Serious: Yes (Other)
  Sender: FDA-Public Use
  Company Number: GB-PFIZER INC-GB-WYE-G05163609

PATIENT
  Age: 46 Year
  Sex: Female
  Weight: 68 kg

DRUGS (4)
  1. RISPERDONE [Suspect]
     Dosage: 4 MG, UNK
     Route: 048
     Dates: start: 20070508
  2. LITHIUM [Concomitant]
     Dosage: 600 MG, 1X/DAY
     Dates: start: 20070201
  3. VENLAFAXINE HCL [Suspect]
     Dosage: UNK
     Route: 065
  4. QUETIAPINE [Suspect]
     Dosage: UNK

REACTIONS (2)
  - HYPERPROLACTINAEMIA [None]
  - BREAST PAIN [None]
